FAERS Safety Report 5465550-8 (Version None)
Quarter: 2007Q3

REPORT INFORMATION
  Report Type: 
  Country: None (occurrence: None)
  Receive Date: 20070924
  Receipt Date: 19920520
  Transmission Date: 20080115
  Serious: Yes (Other)
  Sender: FDA-Public Use
  Company Number: FR-PFIZER INC-2006122561

PATIENT
  Sex: Male

DRUGS (5)
  1. IRINOTECAN HCL [Suspect]
     Indication: RESPIRATORY TRACT CARCINOMA IN SITU
     Dosage: DAILY DOSE:588MG-FREQ:EVERY 3 WEEKS
     Route: 042
     Dates: start: 19920414, end: 19920414
  2. BENFLUOREX [Concomitant]
     Route: 048
  3. FENOFIBRATE [Concomitant]
     Route: 048
  4. GLYBURIDE [Concomitant]
     Route: 048
  5. PERINDOPRIL ERBUMINE [Concomitant]
     Route: 048

REACTIONS (2)
  - BLINDNESS TRANSIENT [None]
  - DEPRESSION [None]
